FAERS Safety Report 4268598-4 (Version None)
Quarter: 2004Q1

REPORT INFORMATION
  Report Type: 
  Country: None (occurrence: None)
  Receive Date: 20040112
  Receipt Date: 20040102
  Transmission Date: 20041129
  Serious: Yes (Hospitalization)
  Sender: FDA-Public Use
  Company Number: FR-GLAXOSMITHKLINE-B0318800A

PATIENT
  Age: 23 Year
  Sex: Male
  Weight: 146 kg

DRUGS (5)
  1. VENTOLIN [Suspect]
     Indication: BRONCHITIS
     Dosage: 100MCG TWICE PER DAY
     Route: 055
     Dates: start: 20031025, end: 20031028
  2. PIVALONE [Suspect]
     Indication: BRONCHITIS
     Dosage: 1UNIT TWICE PER DAY
     Route: 045
     Dates: start: 20031025, end: 20031028
  3. PNEUMOREL [Suspect]
     Indication: BRONCHITIS
     Dosage: 80MG THREE TIMES PER DAY
     Route: 048
     Dates: start: 20031025, end: 20031028
  4. ROCEPHIN [Suspect]
     Indication: BRONCHITIS
     Dosage: 1G PER DAY
     Route: 030
     Dates: start: 20031025, end: 20031028
  5. SURBRONC [Suspect]
     Indication: BRONCHITIS
     Dosage: 60MG TWICE PER DAY
     Route: 048
     Dates: start: 20031025, end: 20031028

REACTIONS (2)
  - SUPERINFECTION [None]
  - VASCULAR PURPURA [None]
